FAERS Safety Report 9263121 (Version 4)
Quarter: 2013Q2

REPORT INFORMATION
  Report Type: Spontaneous
  Country: US (occurrence: US)
  Receive Date: 20130430
  Receipt Date: 20130603
  Transmission Date: 20140414
  Serious: Yes (Other)
  Sender: FDA-Public Use
  Company Number: US-PFIZER INC-2013129789

PATIENT
  Sex: Female
  Weight: 68.03 kg

DRUGS (7)
  1. LIPITOR [Suspect]
     Indication: BLOOD CHOLESTEROL ABNORMAL
     Dosage: 80 MG, DAILY
  2. LIPITOR [Suspect]
     Dosage: UNK, DAILY
  3. CADUET [Suspect]
     Dosage: UNK
  4. ACCUPRIL [Suspect]
     Dosage: UNK
  5. VERAPAMIL [Concomitant]
     Indication: HYPERTENSION
     Dosage: 240 MG, 1X/DAY
  6. BENICAR HCT [Concomitant]
     Indication: HYPERTENSION
     Dosage: 40 MG/25 MG/DAILY
  7. LEVOTHYROXINE [Concomitant]
     Indication: THYROID DISORDER
     Dosage: 112 UG, 1X/DAY

REACTIONS (4)
  - Thyroid cancer [Unknown]
  - Nasopharyngitis [Unknown]
  - Tooth disorder [Unknown]
  - Influenza [Unknown]
